FAERS Safety Report 15556430 (Version 5)
Quarter: 2019Q1

REPORT INFORMATION
  Report Type: Spontaneous
  Country: ES (occurrence: ES)
  Receive Date: 20181026
  Receipt Date: 20190215
  Transmission Date: 20190417
  Serious: Yes (Other)
  Sender: FDA-Public Use
  Company Number: ES-009507513-1810ESP008468

PATIENT
  Age: 74 Year
  Sex: Female
  Weight: 46 kg

DRUGS (9)
  1. FEMARA [Concomitant]
     Active Substance: LETROZOLE
     Dosage: 2.5 MILLIGRAM, Q24H
     Route: 048
     Dates: start: 20171010
  2. SIVEXTRO [Suspect]
     Active Substance: TEDIZOLID PHOSPHATE
     Indication: OSTEOMYELITIS CHRONIC
     Dosage: 200 MILLIGRAM, Q24H AT BREAKFAST
     Route: 048
     Dates: start: 20180526, end: 20181015
  3. METFORMIN [Concomitant]
     Active Substance: METFORMIN HYDROCHLORIDE
     Indication: TYPE 2 DIABETES MELLITUS
     Dosage: 850 MILLIGRAM, Q12H
     Route: 048
     Dates: start: 20150312, end: 20181017
  4. SINOGAN (LEVOMEPROMAZINE HYDROCHLORIDE) [Concomitant]
     Dosage: DOSE:12.5 MG, Q24H
     Route: 048
     Dates: start: 20121230
  5. FERROUS SULFATE. [Concomitant]
     Active Substance: FERROUS SULFATE
     Dosage: 325 MILLIGRAM, Q24H
     Route: 048
     Dates: start: 20090714, end: 20181026
  6. SIVEXTRO [Suspect]
     Active Substance: TEDIZOLID PHOSPHATE
     Dosage: 200MG EVERY 24 HOURS
     Route: 048
     Dates: start: 20180526, end: 20181026
  7. ACFOL [Concomitant]
     Active Substance: FOLIC ACID
     Dosage: 5 MILLIGRAM, Q24H
     Route: 048
     Dates: start: 20090714, end: 20181026
  8. OMEPRAZOLE. [Concomitant]
     Active Substance: OMEPRAZOLE
     Dosage: 20 MILLIGRAM, Q24H
     Route: 048
     Dates: start: 20031203
  9. LORAZEPAM. [Concomitant]
     Active Substance: LORAZEPAM
     Dosage: 1 MILLIGRAM, Q24H
     Route: 048
     Dates: start: 20111004

REACTIONS (1)
  - Lactic acidosis [Recovered/Resolved]

NARRATIVE: CASE EVENT DATE: 20181015
